FAERS Safety Report 17035457 (Version 2)
Quarter: 2019Q4

REPORT INFORMATION
  Report Type: Spontaneous
  Country: UA (occurrence: UA)
  Receive Date: 20191115
  Receipt Date: 20191125
  Transmission Date: 20200122
  Serious: Yes (Hospitalization, Other)
  Sender: FDA-Public Use
  Company Number: UA-009507513-1911UKR004751

PATIENT
  Age: 29 Year
  Sex: Male

DRUGS (1)
  1. KEYTRUDA [Suspect]
     Active Substance: PEMBROLIZUMAB
     Indication: NON-SMALL CELL LUNG CANCER
     Dosage: 200 MILLIGRAM, EVERY 3 WEEKS
     Dates: start: 20191017, end: 2019

REACTIONS (11)
  - Hydrothorax [Not Recovered/Not Resolved]
  - Splenic lesion [Unknown]
  - Peripheral artery thrombosis [Unknown]
  - Pelvic venous thrombosis [Unknown]
  - Asthenia [Unknown]
  - Pulmonary embolism [Not Recovered/Not Resolved]
  - Renal disorder [Unknown]
  - Pulmonary infarction [Not Recovered/Not Resolved]
  - Pneumonia [Not Recovered/Not Resolved]
  - Mediastinal disorder [Not Recovered/Not Resolved]
  - Malignant neoplasm progression [Unknown]

NARRATIVE: CASE EVENT DATE: 20191105
